FAERS Safety Report 16067336 (Version 2)
Quarter: 2019Q2

REPORT INFORMATION
  Report Type: Spontaneous
  Country: ES (occurrence: ES)
  Receive Date: 20190313
  Receipt Date: 20190404
  Transmission Date: 20190711
  Serious: Yes (Other)
  Sender: FDA-Public Use
  Company Number: ES-ELI_LILLY_AND_COMPANY-ES201811010313

PATIENT
  Age: 56 Year
  Sex: Male

DRUGS (2)
  1. PARATHYROID HORMONE [Concomitant]
     Active Substance: PARATHYROID HORMONE
     Indication: SPINAL FRACTURE
  2. FORSTEO 250UG/ML [Suspect]
     Active Substance: TERIPARATIDE
     Indication: SPINAL FRACTURE
     Dosage: UNK, UNKNOWN
     Route: 065
     Dates: start: 201803

REACTIONS (2)
  - Off label use [Unknown]
  - Liver disorder [Unknown]
